FAERS Safety Report 5056800-0 (Version None)
Quarter: 2006Q2

REPORT INFORMATION
  Report Type: 
  Country: None (occurrence: None)
  Receive Date: 20060619
  Receipt Date: 20050421
  Transmission Date: 20061013
  Serious: Yes (Other)
  Sender: FDA-Public Use
  Company Number: WAES 0503USA01790

PATIENT
  Sex: 0

DRUGS (1)
  1. COZAAR [Suspect]
     Dosage: 50 MG/PO
     Route: 048

REACTIONS (1)
  - CEREBROVASCULAR ACCIDENT [None]
